FAERS Safety Report 20642465 (Version 1)
Quarter: 2022Q1

REPORT INFORMATION
  Report Type: Other
  Country: GB (occurrence: GB)
  Receive Date: 20220328
  Receipt Date: 20220328
  Transmission Date: 20220423
  Serious: Yes (Hospitalization, Other)
  Sender: FDA-Public Use
  Company Number: None

PATIENT
  Sex: Female

DRUGS (3)
  1. PREDNISOLONE [Suspect]
     Active Substance: PREDNISOLONE
     Indication: Product used for unknown indication
     Dosage: UNK,  FREQ.
     Route: 065
  2. PROGRAF [Suspect]
     Active Substance: TACROLIMUS
     Indication: Product used for unknown indication
     Dosage: UNK, FREQ.
     Route: 065
  3. PROGRAF [Suspect]
     Active Substance: TACROLIMUS
     Dosage: UNK, FREQ, 5 MILLIGRAM (STRENGTH)
     Route: 065

REACTIONS (2)
  - Cardiac arrest [Unknown]
  - Large intestine perforation [Unknown]
